FAERS Safety Report 5048048-0 (Version None)
Quarter: 2006Q2

REPORT INFORMATION
  Report Type: 
  Country: None (occurrence: None)
  Receive Date: 20060601
  Receipt Date: 20060321
  Transmission Date: 20061013
  Serious: No
  Sender: FDA-Public Use
  Company Number: 2006PV010642

PATIENT
  Age: 59 Year
  Sex: Male
  Weight: 104.3273 kg

DRUGS (2)
  1. BYETTA [Suspect]
     Indication: DIABETES MELLITUS NON-INSULIN-DEPENDENT
     Dosage: SEE IMAGE
     Route: 058
     Dates: start: 20050810, end: 20051001
  2. BYETTA [Suspect]
     Indication: DIABETES MELLITUS NON-INSULIN-DEPENDENT
     Dosage: SEE IMAGE
     Route: 058
     Dates: start: 20051001

REACTIONS (6)
  - EAR PRURITUS [None]
  - EYE PRURITUS [None]
  - PARANASAL SINUS HYPERSECRETION [None]
  - SENSATION OF FOREIGN BODY [None]
  - SINUS HEADACHE [None]
  - WEIGHT DECREASED [None]
